FAERS Safety Report 5820975-3 (Version None)
Quarter: 2008Q3

REPORT INFORMATION
  Report Type: 
  Country: None (occurrence: None)
  Receive Date: 20080724
  Receipt Date: 20080716
  Transmission Date: 20090109
  Serious: Yes (Hospitalization)
  Sender: FDA-Public Use
  Company Number: FR-AVENTIS-200812709FR

PATIENT
  Age: 83 Year
  Sex: Male

DRUGS (9)
  1. LASIX [Suspect]
     Indication: DRUG USE FOR UNKNOWN INDICATION
     Route: 048
  2. ALLOPURINOL [Suspect]
     Indication: GOUT
     Route: 048
     Dates: end: 20080611
  3. LUMIRELAX                          /00047901/ [Concomitant]
     Indication: DRUG USE FOR UNKNOWN INDICATION
     Dates: start: 20080526
  4. AVODART [Concomitant]
     Indication: DRUG USE FOR UNKNOWN INDICATION
     Route: 048
     Dates: start: 20080401
  5. PREVISCAN                          /00789001/ [Concomitant]
     Indication: DRUG USE FOR UNKNOWN INDICATION
     Route: 048
  6. GARDENALE                          /00023202/ [Concomitant]
     Indication: DRUG USE FOR UNKNOWN INDICATION
  7. FOZITEC                            /00915301/ [Concomitant]
     Indication: DRUG USE FOR UNKNOWN INDICATION
     Route: 048
  8. LAMALINE                           /00764901/ [Concomitant]
     Indication: DRUG USE FOR UNKNOWN INDICATION
     Dates: start: 20080501, end: 20080501
  9. IXPRIM [Concomitant]
     Indication: DRUG USE FOR UNKNOWN INDICATION
     Route: 048
     Dates: start: 20080501

REACTIONS (1)
  - PANCYTOPENIA [None]
